FAERS Safety Report 20765861 (Version 1)
Quarter: 2022Q2

REPORT INFORMATION
  Report Type: Spontaneous
  Country: US (occurrence: US)
  Receive Date: 20220428
  Receipt Date: 20220428
  Transmission Date: 20220721
  Serious: No
  Sender: FDA-Public Use
  Company Number: US-SANOFI-01074729

PATIENT
  Age: 87 Year
  Sex: Female

DRUGS (1)
  1. LANTUS SOLOSTAR [Suspect]
     Active Substance: INSULIN GLARGINE
     Indication: Type 2 diabetes mellitus
     Dosage: DRUG STRUCTURE DOSAGE : SLIDING SCALE DRUG INTERVAL DOSAGE : ONCE DAILY DRUG TREATMENT DURATION:2 TI

REACTIONS (3)
  - Visual impairment [Unknown]
  - Product storage error [Unknown]
  - Inappropriate schedule of product administration [Unknown]
